FAERS Safety Report 15608397 (Version 1)
Quarter: 2018Q4

REPORT INFORMATION
  Report Type: Spontaneous
  Country: CN (occurrence: CN)
  Receive Date: 20181112
  Receipt Date: 20181112
  Transmission Date: 20190205
  Serious: Yes (Hospitalization, Other)
  Sender: FDA-Public Use
  Company Number: CN-GILEAD-2018-0369758

PATIENT
  Age: 50 Year
  Sex: Male

DRUGS (2)
  1. LAMIVUDINE. [Suspect]
     Active Substance: LAMIVUDINE
     Indication: CHRONIC HEPATITIS B
     Dosage: 1 DF, QD,TABLET
     Route: 048
  2. HEPSERA [Suspect]
     Active Substance: ADEFOVIR DIPIVOXIL
     Indication: CHRONIC HEPATITIS B
     Dosage: 10 DF(MG), QD
     Route: 048
     Dates: end: 20181016

REACTIONS (5)
  - Alanine aminotransferase increased [Recovering/Resolving]
  - Drug resistance [Unknown]
  - Product use issue [Recovered/Resolved]
  - Treatment noncompliance [Recovered/Resolved]
  - Blood creatinine increased [Recovering/Resolving]
